FAERS Safety Report 24177726 (Version 2)
Quarter: 2024Q4

REPORT INFORMATION
  Report Type: Report from Study
  Country: IN (occurrence: IN)
  Receive Date: 20240806
  Receipt Date: 20241105
  Transmission Date: 20250115
  Serious: Yes (Other)
  Sender: ROCHE
  Company Number: IN-ROCHE-10000040766

PATIENT
  Age: 63 Year
  Sex: Female

DRUGS (2)
  1. PERJETA [Suspect]
     Active Substance: PERTUZUMAB
     Indication: Breast cancer
     Route: 042
     Dates: start: 20230920
  2. PERJETA [Suspect]
     Active Substance: PERTUZUMAB
     Route: 042
     Dates: start: 20230920

REACTIONS (4)
  - Off label use [Unknown]
  - Acute kidney injury [Unknown]
  - Gastroenteritis [Unknown]
  - Anaemia [Unknown]
